FAERS Safety Report 9864417 (Version 1)
Quarter: 2014Q1

REPORT INFORMATION
  Report Type: Spontaneous
  Country: US (occurrence: US)
  Receive Date: 20140203
  Receipt Date: 20140203
  Transmission Date: 20141002
  Serious: No
  Sender: FDA-Public Use
  Company Number: US-AMGEN-USASP2014002299

PATIENT
  Age: 80 Year
  Sex: Female

DRUGS (3)
  1. ENBREL [Suspect]
     Indication: RHEUMATOID ARTHRITIS
     Dosage: 50 MG, QWK
     Route: 065
     Dates: start: 20090817, end: 201303
  2. ENBREL [Suspect]
  3. METHOTREXATE [Concomitant]
     Dosage: UNK
     Dates: end: 201303

REACTIONS (2)
  - Renal disorder [Recovered/Resolved]
  - Arthritis [Not Recovered/Not Resolved]
